FAERS Safety Report 7739627-8 (Version None)
Quarter: 2011Q3

REPORT INFORMATION
  Report Type: 
  Country: None (occurrence: None)
  Receive Date: 20110909
  Receipt Date: 20110825
  Transmission Date: 20111222
  Serious: Yes (Hospitalization)
  Sender: FDA-Public Use
  Company Number: FR-ARROW GEN-2011-14183

PATIENT
  Age: 54 Year
  Sex: Female

DRUGS (2)
  1. ALCOHOL [Suspect]
     Indication: PRODUCT USED FOR UNKNOWN INDICATION
     Dosage: UNK
     Route: 048
  2. CITALOPRAM HYDROBROMIDE [Suspect]
     Indication: MAJOR DEPRESSION
     Dosage: 20 MG, DAILY
     Route: 048

REACTIONS (8)
  - VENTRICULAR TACHYCARDIA [None]
  - ALTERED STATE OF CONSCIOUSNESS [None]
  - VENTRICULAR FIBRILLATION [None]
  - DRUG INTERACTION [None]
  - OVERDOSE [None]
  - ELECTROCARDIOGRAM QT PROLONGED [None]
  - CONVULSION [None]
  - BUNDLE BRANCH BLOCK LEFT [None]
